FAERS Safety Report 4390858-7 (Version None)
Quarter: 2004Q3

REPORT INFORMATION
  Report Type: 
  Country: None (occurrence: None)
  Receive Date: 20040702
  Receipt Date: 20040702
  Transmission Date: 20050211
  Serious: Yes (Other)
  Sender: FDA-Public Use
  Company Number: None

PATIENT
  Sex: Female
  Weight: 60.3284 kg

DRUGS (1)
  1. FLUOXETINE HCL [Suspect]
     Indication: PREMENSTRUAL SYNDROME
     Dosage: 10 MG 2 TIMES ORAL
     Route: 048
     Dates: start: 20030919, end: 20040625

REACTIONS (3)
  - DIZZINESS [None]
  - FEELING ABNORMAL [None]
  - PARAESTHESIA [None]
